FAERS Safety Report 21988931 (Version 1)
Quarter: 2023Q1

REPORT INFORMATION
  Report Type: Spontaneous
  Country: FR (occurrence: FR)
  Receive Date: 20230214
  Receipt Date: 20230214
  Transmission Date: 20230417
  Serious: Yes (Death, Hospitalization)
  Sender: FDA-Public Use
  Company Number: None

PATIENT
  Age: 80 Year
  Sex: Female

DRUGS (7)
  1. HALDOL [Suspect]
     Active Substance: HALOPERIDOL
     Indication: Agitation
     Dosage: 2 MG/ML SOIT 16 GOUTTES/JOUR
     Route: 048
     Dates: start: 20220808, end: 20220808
  2. LOXAPINE [Suspect]
     Active Substance: LOXAPINE
     Indication: Agitation
     Route: 048
     Dates: start: 20220808, end: 20220814
  3. TERALITHE [Suspect]
     Active Substance: LITHIUM CARBONATE
     Indication: Mixed anxiety and depressive disorder
     Dosage: LONG COURS
     Route: 048
     Dates: end: 20220815
  4. AMITRIPTYLINE HYDROCHLORIDE [Concomitant]
     Active Substance: AMITRIPTYLINE HYDROCHLORIDE
  5. PRAZEPAM [Concomitant]
     Active Substance: PRAZEPAM
  6. SERETIDE DISKUS [FLUTICASONE;SALMETEROL] [Concomitant]
  7. LORMETAZEPAM [Concomitant]
     Active Substance: LORMETAZEPAM

REACTIONS (3)
  - Sepsis [Fatal]
  - Resting tremor [Not Recovered/Not Resolved]
  - Muscle rigidity [Not Recovered/Not Resolved]

NARRATIVE: CASE EVENT DATE: 20220809
